FAERS Safety Report 14216383 (Version 1)
Quarter: 2017Q4

REPORT INFORMATION
  Report Type: Spontaneous
  Country: FR (occurrence: FR)
  Receive Date: 20171122
  Receipt Date: 20171122
  Transmission Date: 20180321
  Serious: Yes (Hospitalization)
  Sender: FDA-Public Use
  Company Number: FR-ASTRAZENECA-2017SF17918

PATIENT
  Age: 16777 Day
  Sex: Female

DRUGS (5)
  1. KETOPROFEN. [Suspect]
     Active Substance: KETOPROFEN
     Indication: RENAL COLIC
     Dosage: 100 MG / 4 ML, 100 MG IN SINGLE DOSE
     Route: 042
     Dates: start: 20171028
  2. BIPROFENID SR [Suspect]
     Active Substance: KETOPROFEN
     Indication: PROCEDURAL PAIN
     Route: 048
     Dates: start: 20171023, end: 20171028
  3. INNOHEP [Concomitant]
     Active Substance: TINZAPARIN SODIUM
     Dates: start: 20171023
  4. PARACETAMOL [Concomitant]
     Active Substance: ACETAMINOPHEN
     Dates: start: 20171023
  5. INEXIUM [Suspect]
     Active Substance: ESOMEPRAZOLE
     Indication: GASTROOESOPHAGEAL REFLUX DISEASE
     Route: 048
     Dates: start: 20171023, end: 20171028

REACTIONS (2)
  - Renal failure [Recovered/Resolved]
  - Hepatocellular injury [Recovered/Resolved]

NARRATIVE: CASE EVENT DATE: 20171028
